FAERS Safety Report 20833040 (Version 1)
Quarter: 2022Q2

REPORT INFORMATION
  Report Type: Spontaneous
  Country: GB (occurrence: GB)
  Receive Date: 20220516
  Receipt Date: 20220516
  Transmission Date: 20220720
  Serious: Yes (Other)
  Sender: FDA-Public Use
  Company Number: None

PATIENT
  Age: 84 Year
  Sex: Female
  Weight: 69.00 kg

DRUGS (9)
  1. FUROSEMIDE [Suspect]
     Active Substance: FUROSEMIDE
     Indication: Product used for unknown indication
     Route: 048
  2. AMOXICILLIN [Concomitant]
     Active Substance: AMOXICILLIN
     Dates: start: 20220317
  3. APIXABAN [Concomitant]
     Active Substance: APIXABAN
     Dosage: 12 HOURS APART
     Dates: start: 20220405
  4. CEPHALEXIN [Concomitant]
     Active Substance: CEPHALEXIN
     Dates: start: 20220425
  5. RAMIPRIL [Concomitant]
     Active Substance: RAMIPRIL
     Dates: start: 20220304
  6. BECLOMETASONE, FORMOTEROL, GLYCOPYRRONIUM [Concomitant]
     Dosage: 87MCG/5MCG/9MCG
     Route: 055
     Dates: start: 20220405
  7. VENTOLIN [Concomitant]
     Active Substance: ALBUTEROL SULFATE
     Dosage: 1 TO 2 PUFFS UP TO FOUR TIMES DAILY AS REQUIRED
     Route: 055
     Dates: start: 20220405
  8. PARAFFIN [Concomitant]
     Active Substance: PARAFFIN
     Dates: start: 20220304
  9. MINERAL OIL [Concomitant]
     Active Substance: MINERAL OIL
     Dates: start: 20220304

REACTIONS (1)
  - Acute kidney injury [Recovering/Resolving]
